FAERS Safety Report 21350414 (Version 1)
Quarter: 2022Q3

REPORT INFORMATION
  Report Type: Report from Study
  Country: US (occurrence: None)
  Receive Date: 20220919
  Receipt Date: 20220919
  Transmission Date: 20221027
  Serious: Yes (Death)
  Sender: FDA-Public Use
  Company Number: 2022A320337

PATIENT
  Sex: Female

DRUGS (1)
  1. IMFINZI [Suspect]
     Active Substance: DURVALUMAB
     Indication: Lung carcinoma cell type unspecified stage 0
     Dosage: 1500MG/ML EVERY THREE WEEKS
     Route: 042
     Dates: start: 20220826

REACTIONS (1)
  - Death [Fatal]
